FAERS Safety Report 5396564-4 (Version None)
Quarter: 2007Q3

REPORT INFORMATION
  Report Type: 
  Country: None (occurrence: None)
  Receive Date: 20070725
  Receipt Date: 20070710
  Transmission Date: 20080115
  Serious: Yes (Hospitalization)
  Sender: FDA-Public Use
  Company Number: JP-ASTRAZENECA-2007AP03887

PATIENT
  Age: 13931 Day
  Sex: Female

DRUGS (12)
  1. SEROQUEL [Suspect]
     Indication: SCHIZOPHRENIA
     Route: 048
     Dates: start: 20070512, end: 20070513
  2. SEROQUEL [Suspect]
     Route: 048
     Dates: start: 20070514, end: 20070514
  3. SEROQUEL [Suspect]
     Route: 048
     Dates: start: 20070515, end: 20070518
  4. SEROQUEL [Suspect]
     Route: 048
     Dates: start: 20070519, end: 20070522
  5. SEROQUEL [Suspect]
     Route: 048
     Dates: start: 20070523, end: 20070605
  6. SEROQUEL [Suspect]
     Route: 048
     Dates: start: 20070606, end: 20070615
  7. VALPROATE SODIUM [Suspect]
     Indication: EPILEPSY
     Route: 048
     Dates: start: 20061201
  8. FLUMEZIN [Concomitant]
     Indication: SCHIZOPHRENIA
     Route: 048
  9. GOODMIN [Concomitant]
     Indication: SCHIZOPHRENIA
     Route: 048
  10. AKIRIDEN [Concomitant]
     Indication: PARKINSONISM
     Route: 048
  11. TRIPHEDINON [Concomitant]
     Indication: PARKINSONISM
     Route: 048
  12. MAGNESIUM OXIDE [Concomitant]
     Indication: CONSTIPATION
     Route: 048

REACTIONS (1)
  - PLATELET COUNT DECREASED [None]
